FAERS Safety Report 6199443-8 (Version None)
Quarter: 2009Q2

REPORT INFORMATION
  Report Type: 
  Country: None (occurrence: None)
  Receive Date: 20090522
  Receipt Date: 20090518
  Transmission Date: 20091009
  Serious: Yes (Death)
  Sender: FDA-Public Use
  Company Number: FR-BRISTOL-MYERS SQUIBB COMPANY-14566376

PATIENT
  Age: 62 Year
  Sex: Female

DRUGS (5)
  1. APROVEL TABS 150 MG [Suspect]
     Indication: HYPERTENSION
     Dosage: INTERRUPTED AND RESTARTED ON 06MAR09.
     Route: 048
     Dates: start: 20090217
  2. CARDENSIEL [Concomitant]
     Indication: HYPERTENSION
     Route: 048
  3. PREVISCAN [Concomitant]
     Indication: ANTICOAGULANT THERAPY
     Route: 048
  4. LASIX [Concomitant]
     Indication: HYPERTENSION
     Route: 048
  5. TANAKAN [Concomitant]
     Indication: MEMORY IMPAIRMENT
     Route: 048

REACTIONS (6)
  - ABDOMINAL PAIN [None]
  - DEATH [None]
  - DIARRHOEA [None]
  - GASTROINTESTINAL DISORDER [None]
  - MUSCLE SPASMS [None]
  - VOMITING [None]
